FAERS Safety Report 25776194 (Version 1)
Quarter: 2025Q3

REPORT INFORMATION
  Report Type: Spontaneous
  Country: US (occurrence: US)
  Receive Date: 20250909
  Receipt Date: 20250909
  Transmission Date: 20251021
  Serious: No
  Sender: DOMPE FARMACEUTICI
  Company Number: US-FARMAPROD-202408-2962

PATIENT
  Sex: Male

DRUGS (19)
  1. OXERVATE [Suspect]
     Active Substance: CENEGERMIN-BKBJ
     Indication: Neurotrophic keratopathy
     Route: 047
     Dates: start: 20240805, end: 20241002
  2. OXERVATE [Suspect]
     Active Substance: CENEGERMIN-BKBJ
     Route: 047
     Dates: start: 20241003
  3. ASPIRIN [Concomitant]
     Active Substance: ASPIRIN
  4. TESTOSTERONE CYPIONATE [Concomitant]
     Active Substance: TESTOSTERONE CYPIONATE
  5. LEXAPRO [Concomitant]
     Active Substance: ESCITALOPRAM OXALATE
  6. TAMSULOSIN HYDROCHLORIDE [Concomitant]
     Active Substance: TAMSULOSIN HYDROCHLORIDE
  7. CYCLOBENZAPRINE HYDROCHLORIDE [Concomitant]
     Active Substance: CYCLOBENZAPRINE HYDROCHLORIDE
  8. CLONAZEPAM [Concomitant]
     Active Substance: CLONAZEPAM
  9. FLUOCINONIDE [Concomitant]
     Active Substance: FLUOCINONIDE
  10. KETOCONAZOLE [Concomitant]
     Active Substance: KETOCONAZOLE
  11. TAZORAC [Concomitant]
     Active Substance: TAZAROTENE
  12. CLINDAMYCIN AND BENZOYL PEROXIDE [Concomitant]
     Active Substance: BENZOYL PEROXIDE\CLINDAMYCIN PHOSPHATE
  13. SOTALOL [Concomitant]
     Active Substance: SOTALOL
  14. CRESTOR [Concomitant]
     Active Substance: ROSUVASTATIN CALCIUM
  15. NIFEDIPINE [Concomitant]
     Active Substance: NIFEDIPINE
  16. ELIQUIS [Concomitant]
     Active Substance: APIXABAN
  17. LOSARTAN POTASSIUM [Concomitant]
     Active Substance: LOSARTAN POTASSIUM
  18. ZETIA [Concomitant]
     Active Substance: EZETIMIBE
  19. XIIDRA [Concomitant]
     Active Substance: LIFITEGRAST

REACTIONS (4)
  - Accidental overdose [Unknown]
  - Wrong technique in product usage process [Unknown]
  - Product dose omission issue [Unknown]
  - Product administration error [Unknown]
